FAERS Safety Report 18793928 (Version 1)
Quarter: 2021Q1

REPORT INFORMATION
  Report Type: Spontaneous
  Country: US (occurrence: US)
  Receive Date: 20210126
  Receipt Date: 20210126
  Transmission Date: 20210419
  Serious: Yes (Other)
  Sender: FDA-Public Use
  Company Number: None

PATIENT
  Age: 78 Year
  Sex: Male
  Weight: 101 kg

DRUGS (1)
  1. IVERMECTIN 3MG [Suspect]
     Active Substance: IVERMECTIN
     Indication: COVID-19
     Route: 048
     Dates: start: 20210105, end: 20210106

REACTIONS (6)
  - Respiratory failure [None]
  - Troponin increased [None]
  - Pneumonia viral [None]
  - Chest pain [None]
  - SARS-CoV-2 test positive [None]
  - Hypertension [None]

NARRATIVE: CASE EVENT DATE: 20210106
